FAERS Safety Report 15555973 (Version 1)
Quarter: 2018Q4

REPORT INFORMATION
  Report Type: Report from Study
  Country: US (occurrence: US)
  Receive Date: 20181026
  Receipt Date: 20181026
  Transmission Date: 20190205
  Serious: Yes (Other)
  Sender: FDA-Public Use
  Company Number: US-UCBSA-2018046671

PATIENT
  Sex: Female

DRUGS (1)
  1. LEVETIRACETAM. [Suspect]
     Active Substance: LEVETIRACETAM
     Indication: SEIZURE
     Dosage: 1000 MG PER DAY

REACTIONS (9)
  - Lethargy [Unknown]
  - Borderline personality disorder [Unknown]
  - Pregnancy [Unknown]
  - Anger [Unknown]
  - Weight increased [Unknown]
  - Depression [Recovering/Resolving]
  - Mood swings [Unknown]
  - Abortion induced [Unknown]
  - Pregnancy on oral contraceptive [Unknown]
